FAERS Safety Report 5501661-6 (Version None)
Quarter: 2007Q4

REPORT INFORMATION
  Report Type: 
  Country: None (occurrence: None)
  Receive Date: 20071026
  Receipt Date: 20071026
  Transmission Date: 20080405
  Serious: Yes (Other)
  Sender: FDA-Public Use
  Company Number: None

PATIENT
  Age: 34 Year
  Sex: Female
  Weight: 40.8237 kg

DRUGS (1)
  1. MICROGESTIN 1/20FE [Suspect]
     Dosage: 1 PILL DAILY PO
     Route: 048

REACTIONS (2)
  - ASTHENIA [None]
  - FATIGUE [None]
